FAERS Safety Report 13754856 (Version 2)
Quarter: 2023Q1

REPORT INFORMATION
  Report Type: Spontaneous
  Country: BY (occurrence: BY)
  Receive Date: 20170714
  Receipt Date: 20230331
  Transmission Date: 20230418
  Serious: Yes (Other)
  Sender: FDA-Public Use
  Company Number: BY-ASTELLAS-2017US027043

PATIENT
  Sex: Female

DRUGS (13)
  1. TACROLIMUS [Suspect]
     Active Substance: TACROLIMUS
     Indication: Renal and liver transplant
     Route: 065
  2. TACROLIMUS [Suspect]
     Active Substance: TACROLIMUS
     Route: 065
  3. TACROLIMUS [Suspect]
     Active Substance: TACROLIMUS
     Route: 065
  4. METHYLPREDNISOLONE [Suspect]
     Active Substance: METHYLPREDNISOLONE
     Indication: Renal and liver transplant
     Route: 065
  5. METHYLPREDNISOLONE [Suspect]
     Active Substance: METHYLPREDNISOLONE
     Route: 065
  6. DROTAVERINE [Concomitant]
     Active Substance: DROTAVERINE
     Indication: Drug therapy
     Dosage: UNK UNK, UNKNOWN FREQ.
     Route: 041
  7. PAPAVERINE [Concomitant]
     Active Substance: PAPAVERINE
     Indication: Drug therapy
     Dosage: UNK UNK, UNKNOWN FREQ.
     Route: 054
  8. URSODIOL [Concomitant]
     Active Substance: URSODIOL
     Indication: Prophylaxis
     Dosage: UNK UNK, UNKNOWN FREQ.
     Route: 065
  9. ADEMETIONINE [Concomitant]
     Active Substance: ADEMETIONINE
     Indication: Prophylaxis
     Dosage: UNK UNK, UNKNOWN FREQ.
     Route: 065
  10. ARTICHOKE [Concomitant]
     Active Substance: ARTICHOKE
     Indication: Prophylaxis
     Dosage: UNK UNK, UNKNOWN FREQ. (LEAF EXTRACT)
     Route: 065
  11. IRON [Concomitant]
     Active Substance: IRON
     Indication: Prophylaxis urinary tract infection
     Dosage: UNK UNK, UNKNOWN FREQ.
     Route: 065
  12. FOLIC ACID [Concomitant]
     Active Substance: FOLIC ACID
     Indication: Prophylaxis urinary tract infection
     Dosage: UNK UNK, UNKNOWN FREQ.
     Route: 065
  13. VITAMIN B [Concomitant]
     Active Substance: VITAMIN B
     Indication: Prophylaxis urinary tract infection
     Dosage: UNK UNK, UNKNOWN FREQ.
     Route: 065

REACTIONS (3)
  - Abortion threatened [Recovered/Resolved]
  - Vaginal infection [Recovered/Resolved]
  - Anaemia [Recovered/Resolved]
